FAERS Safety Report 7547633-1 (Version None)
Quarter: 2011Q2

REPORT INFORMATION
  Report Type: 
  Country: None (occurrence: None)
  Receive Date: 20110614
  Receipt Date: 20110610
  Transmission Date: 20111010
  Serious: Yes (Other)
  Sender: FDA-Public Use
  Company Number: US-ABBOTT-11P-163-0726019-00

PATIENT
  Sex: Female
  Weight: 54.48 kg

DRUGS (9)
  1. HUMIRA [Suspect]
     Indication: CROHN'S DISEASE
     Route: 058
     Dates: start: 20100901, end: 20101201
  2. PREDNISONE [Concomitant]
     Indication: PRODUCT USED FOR UNKNOWN INDICATION
  3. XANAX [Concomitant]
     Indication: PRODUCT USED FOR UNKNOWN INDICATION
  4. HYDROXYZINE [Concomitant]
     Indication: PRODUCT USED FOR UNKNOWN INDICATION
  5. WOMAN'S MULTI-VITAMIN [Concomitant]
     Indication: PRODUCT USED FOR UNKNOWN INDICATION
  6. URSODIOL [Concomitant]
     Indication: PRODUCT USED FOR UNKNOWN INDICATION
  7. CALCIUM CITRATE WITH VIT D [Concomitant]
     Indication: PRODUCT USED FOR UNKNOWN INDICATION
  8. DIFFRIN [Concomitant]
     Indication: ACNE
  9. CLINDAMYCIN [Concomitant]
     Indication: ACNE

REACTIONS (5)
  - PYREXIA [None]
  - SPLENIC LESION [None]
  - ABDOMINAL PAIN [None]
  - LYMPHADENOPATHY [None]
  - SPLENIC ABSCESS [None]
